FAERS Safety Report 9175312 (Version 1)
Quarter: 2013Q1

REPORT INFORMATION
  Report Type: Report from Study
  Country: US (occurrence: US)
  Receive Date: 20130320
  Receipt Date: 20130320
  Transmission Date: 20140127
  Serious: Yes (Other)
  Sender: FDA-Public Use
  Company Number: US-ABBOTT-13P-163-1062966-00

PATIENT
  Sex: Male
  Weight: 81.72 kg

DRUGS (4)
  1. HUMIRA [Suspect]
     Indication: RHEUMATOID ARTHRITIS
     Route: 058
     Dates: start: 201210, end: 201211
  2. HUMIRA [Suspect]
     Route: 058
     Dates: start: 20121206
  3. DILANTIN [Concomitant]
     Indication: CONVULSION
  4. PRIMIDONE [Concomitant]
     Indication: CONVULSION

REACTIONS (1)
  - Abdominal hernia [Recovered/Resolved]
